FAERS Safety Report 9674719 (Version 1)
Quarter: 2013Q4

REPORT INFORMATION
  Report Type: Spontaneous
  Country: US (occurrence: US)
  Receive Date: 20131107
  Receipt Date: 20131107
  Transmission Date: 20140711
  Serious: No
  Sender: FDA-Public Use
  Company Number: US-ENDO PHARMACEUTICALS INC.-HCDA20130070

PATIENT
  Age: 28 Year
  Sex: Male

DRUGS (1)
  1. HYDROCODONE/ACETAMINOPHEN 10MG/325MG [Suspect]
     Indication: PRODUCT USED FOR UNKNOWN INDICATION
     Dosage: 30/975 MG
     Route: 048
     Dates: start: 201211

REACTIONS (1)
  - Drug screen false positive [Unknown]
